FAERS Safety Report 4390210-4 (Version None)
Quarter: 2004Q2

REPORT INFORMATION
  Report Type: 
  Country: None (occurrence: None)
  Receive Date: 20040630
  Receipt Date: 20040614
  Transmission Date: 20050107
  Serious: Yes (Death)
  Sender: FDA-Public Use
  Company Number: CEL-2004-01250-ROC

PATIENT
  Age: 80 Year
  Sex: Male
  Weight: 75.28 kg

DRUGS (10)
  1. ZAROXOLYN [Suspect]
     Dosage: 2.5MG
  2. TRACLEER [Suspect]
     Indication: PULMONARY HYPERTENSION
     Dosage: 52.5MG TWICE DAILY, ROUTE PO
     Route: 048
     Dates: start: 20030610, end: 20030627
  3. LASIX [Concomitant]
  4. DIGOXIN [Concomitant]
  5. IMDUR [Concomitant]
  6. ASPIRIN [Concomitant]
  7. PAPAVERINE [Concomitant]
  8. POTASSIUM [Concomitant]
  9. NORVASC [Concomitant]
  10. MULTIVITAMIN [Concomitant]

REACTIONS (2)
  - BLOOD POTASSIUM DECREASED [None]
  - SUDDEN CARDIAC DEATH [None]
